FAERS Safety Report 4484142-0 (Version None)
Quarter: 2004Q4

REPORT INFORMATION
  Report Type: 
  Country: None (occurrence: None)
  Receive Date: 20041025
  Receipt Date: 20041014
  Transmission Date: 20050328
  Serious: Yes (Hospitalization)
  Sender: FDA-Public Use
  Company Number: TW-MERCK-0410TWN00018

PATIENT
  Age: 75 Year
  Sex: Male

DRUGS (6)
  1. VIOXX [Suspect]
     Indication: BACK PAIN
     Route: 048
     Dates: start: 20040628
  2. CELEBREX [Concomitant]
     Indication: INFLAMMATION
     Route: 048
     Dates: start: 20040802
  3. CELEBREX [Concomitant]
     Indication: ANALGESIC EFFECT
     Route: 048
     Dates: start: 20040802
  4. DEPAKENE [Concomitant]
     Indication: AFFECTIVE DISORDER
     Route: 048
     Dates: start: 20040830
  5. DEPAKENE [Concomitant]
     Indication: EPILEPSY
     Route: 048
     Dates: start: 20040830
  6. NEXIUM [Concomitant]
     Indication: PEPTIC ULCER
     Route: 048
     Dates: start: 20040904

REACTIONS (3)
  - ABDOMINAL PAIN UPPER [None]
  - BLADDER CANCER [None]
  - HEADACHE [None]
